FAERS Safety Report 8002041-4 (Version None)
Quarter: 2011Q4

REPORT INFORMATION
  Report Type: 
  Country: None (occurrence: None)
  Receive Date: 20111222
  Receipt Date: 20111219
  Transmission Date: 20120403
  Serious: Yes (Hospitalization)
  Sender: FDA-Public Use
  Company Number: IL-ABBOTT-11P-082-0885004-00

PATIENT
  Age: 17 Year
  Sex: Male
  Weight: 40 kg

DRUGS (2)
  1. HUMIRA [Suspect]
     Indication: CROHN'S DISEASE
     Route: 058
  2. IMURAN [Concomitant]
     Indication: CROHN'S DISEASE

REACTIONS (5)
  - ABDOMINAL DISTENSION [None]
  - POSTOPERATIVE ADHESION [None]
  - ABDOMINAL PAIN UPPER [None]
  - INTESTINAL OBSTRUCTION [None]
  - DIARRHOEA [None]
